FAERS Safety Report 23093993 (Version 1)
Quarter: 2023Q4

REPORT INFORMATION
  Report Type: Spontaneous
  Country: CA (occurrence: CA)
  Receive Date: 20231023
  Receipt Date: 20231023
  Transmission Date: 20240110
  Serious: Yes (Hospitalization, Other)
  Sender: FDA-Public Use
  Company Number: None

PATIENT
  Age: 72 Year
  Sex: Male

DRUGS (4)
  1. SEMAGLUTIDE [Suspect]
     Active Substance: SEMAGLUTIDE
     Indication: Diabetes mellitus
     Dosage: 1 MG, QW
     Route: 058
  2. BASAGLAR [Suspect]
     Active Substance: INSULIN GLARGINE
     Indication: Diabetes mellitus
     Dosage: 20 IU, QD
     Route: 058
  3. HUMALOG [Suspect]
     Active Substance: INSULIN LISPRO
     Indication: Diabetes mellitus
     Dosage: DOSE: 10 MILLIGRAM, FREQUENCY :  2 EVERY 1 DAYS
     Route: 058
  4. JARDIANCE [Suspect]
     Active Substance: EMPAGLIFLOZIN
     Indication: Diabetes mellitus
     Dosage: 25 MG, QD
     Route: 048

REACTIONS (5)
  - Fall [Recovered/Resolved]
  - Hypoglycaemic coma [Recovered/Resolved]
  - Pneumothorax [Recovered/Resolved]
  - Rib fracture [Recovered/Resolved]
  - Weight decreased [Recovered/Resolved]
